FAERS Safety Report 4818736-7 (Version None)
Quarter: 2005Q4

REPORT INFORMATION
  Report Type: 
  Country: None (occurrence: None)
  Receive Date: 20051101
  Receipt Date: 20051011
  Transmission Date: 20060501
  Serious: No
  Sender: FDA-Public Use
  Company Number: USA0507103501

PATIENT
  Sex: Female

DRUGS (2)
  1. CYMBALTA [Suspect]
     Dosage: 360 MG
  2. HYDROCODONE [Concomitant]

REACTIONS (4)
  - ACCIDENTAL OVERDOSE [None]
  - HALLUCINATION [None]
  - MEDICATION ERROR [None]
  - MEMORY IMPAIRMENT [None]
